FAERS Safety Report 4653021-8 (Version None)
Quarter: 2005Q2

REPORT INFORMATION
  Report Type: 
  Country: None (occurrence: None)
  Receive Date: 20050505
  Receipt Date: 20050422
  Transmission Date: 20051028
  Serious: Yes (Life-Threatening, Hospitalization)
  Sender: FDA-Public Use
  Company Number: FR-BRISTOL-MYERS SQUIBB COMPANY-12950440

PATIENT
  Age: 50 Year
  Sex: Male

DRUGS (4)
  1. GLUCOPHAGE [Suspect]
     Route: 048
     Dates: end: 20050228
  2. VALIUM [Suspect]
     Route: 048
  3. TRIATEC [Suspect]
     Route: 048
     Dates: end: 20050228
  4. VITAMIN B1 + B6 [Concomitant]

REACTIONS (9)
  - ALCOHOLISM [None]
  - CIRCULATORY COLLAPSE [None]
  - HYPOGLYCAEMIA [None]
  - INTESTINAL INFARCTION [None]
  - LACTIC ACIDOSIS [None]
  - LUNG DISORDER [None]
  - RENAL FAILURE ACUTE [None]
  - RHABDOMYOLYSIS [None]
  - THROMBOCYTOPENIA [None]
